FAERS Safety Report 7409948-7 (Version None)
Quarter: 2011Q2

REPORT INFORMATION
  Report Type: 
  Country: None (occurrence: None)
  Receive Date: 20110412
  Receipt Date: 20110407
  Transmission Date: 20111010
  Serious: Yes (Life-Threatening, Hospitalization)
  Sender: FDA-Public Use
  Company Number: FR-PFIZER INC-2011077150

PATIENT
  Age: 30 Month
  Sex: Male

DRUGS (1)
  1. PEDIATRIC ADVIL [Suspect]
     Dosage: UNK
     Route: 048
     Dates: start: 20110215, end: 20110217

REACTIONS (1)
  - CELLULITIS [None]
